FAERS Safety Report 13708641 (Version 8)
Quarter: 2020Q1

REPORT INFORMATION
  Report Type: Spontaneous
  Country: US (occurrence: US)
  Receive Date: 20170630
  Receipt Date: 20200219
  Transmission Date: 20200409
  Serious: Yes (Hospitalization)
  Sender: FDA-Public Use
  Company Number: US-ACTELION-A-NJ2017-155060

PATIENT
  Sex: Female
  Weight: 74.83 kg

DRUGS (3)
  1. REVATIO [Concomitant]
     Active Substance: SILDENAFIL CITRATE
  2. OPSUMIT [Suspect]
     Active Substance: MACITENTAN
     Indication: PULMONARY ARTERIAL HYPERTENSION
     Dosage: 10 MG, QD
     Route: 048
     Dates: start: 20170525
  3. ELIQUIS [Concomitant]
     Active Substance: APIXABAN

REACTIONS (13)
  - Hospitalisation [Unknown]
  - Urinary tract infection [Unknown]
  - Inflammation [Unknown]
  - Oedema [Unknown]
  - Pathological fracture [Unknown]
  - Fall [Unknown]
  - Cardiac disorder [Unknown]
  - Syncope [Unknown]
  - Nasopharyngitis [Unknown]
  - Autoimmune disorder [Unknown]
  - Hypertension [Not Recovered/Not Resolved]
  - Dyspnoea [Unknown]
  - Productive cough [Unknown]

NARRATIVE: CASE EVENT DATE: 2017
